FAERS Safety Report 8561593-6 (Version None)
Quarter: 2012Q3

REPORT INFORMATION
  Report Type: 
  Country: None (occurrence: None)
  Receive Date: 20120802
  Receipt Date: 20120712
  Transmission Date: 20120928
  Serious: No
  Sender: FDA-Public Use
  Company Number: US-ASTRAZENECA-2012SE48862

PATIENT
  Age: 39 Year
  Sex: Male

DRUGS (3)
  1. SYMBICORT [Concomitant]
  2. VENTOLIN [Suspect]
  3. PRILOSEC [Suspect]
     Route: 048

REACTIONS (5)
  - HYPOAESTHESIA [None]
  - EMPHYSEMA [None]
  - CHEST PAIN [None]
  - CHRONIC OBSTRUCTIVE PULMONARY DISEASE [None]
  - LUNG NEOPLASM [None]
